FAERS Safety Report 9274524 (Version 2)
Quarter: 2013Q2

REPORT INFORMATION
  Report Type: Spontaneous
  Country: US (occurrence: US)
  Receive Date: 20130507
  Receipt Date: 20130525
  Transmission Date: 20140414
  Serious: No
  Sender: FDA-Public Use
  Company Number: US-009507513-1304USA016278

PATIENT
  Age: 57 Year
  Sex: Male
  Weight: 84.35 kg

DRUGS (6)
  1. PEGINTRON [Suspect]
     Indication: HEPATITIS C
     Dosage: 150 MICROGRAM, QW
     Route: 058
     Dates: start: 20130118, end: 2013
  2. PEGINTRON [Suspect]
     Dosage: 150 MICROGRAM, QW
     Route: 058
     Dates: start: 20130417, end: 20130424
  3. REBETOL [Suspect]
     Dosage: 600 MG, IN THE MORNING
     Route: 048
  4. REBETOL [Suspect]
     Dosage: 600 MG, IN THE EVENING
     Route: 048
  5. GLYBURIDE [Concomitant]
  6. METFORMIN [Concomitant]

REACTIONS (5)
  - Flank pain [Recovered/Resolved]
  - Fatigue [Recovered/Resolved]
  - Dry mouth [Recovering/Resolving]
  - Asthenia [Recovering/Resolving]
  - Back pain [Recovered/Resolved]
